FAERS Safety Report 8586111-8 (Version None)
Quarter: 2012Q3

REPORT INFORMATION
  Report Type: 
  Country: None (occurrence: None)
  Receive Date: 20120810
  Receipt Date: 20120803
  Transmission Date: 20120928
  Serious: No
  Sender: FDA-Public Use
  Company Number: US-009507513-1208USA002259

PATIENT

DRUGS (1)
  1. IMPLANON [Suspect]
     Dosage: 1 DF, UNK
     Route: 059
     Dates: end: 20120803

REACTIONS (4)
  - MENSTRUATION IRREGULAR [None]
  - IMPLANT SITE FIBROSIS [None]
  - MEDICAL DEVICE COMPLICATION [None]
  - DEVICE DIFFICULT TO USE [None]
